FAERS Safety Report 8780330 (Version 1)
Quarter: 2012Q4

REPORT INFORMATION
  Report Type: Spontaneous
  Country: US (occurrence: None)
  Receive Date: 20120905
  Receipt Date: 20120905
  Transmission Date: 20130627
  Serious: Yes (Other)
  Sender: FDA-Public Use
  Company Number: None

PATIENT
  Age: 41 Year
  Sex: Female
  Weight: 65.77 kg

DRUGS (1)
  1. PREDNISONE [Suspect]
     Indication: ALLERGIC REACTION
     Dosage: 3 Daily
2 Daily
     Route: 048
     Dates: start: 20120718, end: 20120722

REACTIONS (3)
  - Alopecia [None]
  - Visual impairment [None]
  - Dyspepsia [None]
